FAERS Safety Report 4475286-8 (Version None)
Quarter: 2004Q4

REPORT INFORMATION
  Report Type: 
  Country: None (occurrence: None)
  Receive Date: 20041015
  Receipt Date: 20041006
  Transmission Date: 20050328
  Serious: Yes (Hospitalization)
  Sender: FDA-Public Use
  Company Number: PHRM2004FR03022

PATIENT
  Age: 70 Year
  Sex: Male

DRUGS (5)
  1. NEORAL [Suspect]
     Indication: RENAL TRANSPLANT
     Route: 048
     Dates: start: 20040526
  2. AZANTAC [Suspect]
     Route: 048
     Dates: start: 20040526
  3. IMUREL [Suspect]
     Route: 048
     Dates: start: 20040526
  4. CYMEVAN [Suspect]
     Dates: start: 20040526
  5. CORTANCYL [Suspect]
     Route: 048
     Dates: start: 20040526

REACTIONS (5)
  - ALANINE AMINOTRANSFERASE INCREASED [None]
  - ASPARTATE AMINOTRANSFERASE INCREASED [None]
  - MUSCLE HAEMORRHAGE [None]
  - THROMBOSIS [None]
  - TRANSPLANT REJECTION [None]
